FAERS Safety Report 16833883 (Version 3)
Quarter: 2019Q4

REPORT INFORMATION
  Report Type: Spontaneous
  Country: US (occurrence: US)
  Receive Date: 20190920
  Receipt Date: 20191122
  Transmission Date: 20200122
  Serious: Yes (Hospitalization)
  Sender: FDA-Public Use
  Company Number: US-PFIZER INC-2019404222

PATIENT
  Age: 83 Year
  Sex: Female
  Weight: 58.6 kg

DRUGS (5)
  1. FLOVENT [Concomitant]
     Active Substance: FLUTICASONE PROPIONATE
     Indication: ASTHMA
     Dosage: 2 PUFFS INHALED EVERY DAY
  2. PREGABALIN. [Suspect]
     Active Substance: PREGABALIN
     Indication: FIBROMYALGIA
  3. PREGABALIN. [Suspect]
     Active Substance: PREGABALIN
     Indication: PAIN
     Dosage: 50 MG (2 CAPSULES), UNK
     Route: 048
  4. PREGABALIN. [Suspect]
     Active Substance: PREGABALIN
     Indication: NEURALGIA
  5. PAXIL [Concomitant]
     Active Substance: PAROXETINE HYDROCHLORIDE
     Dosage: UNK

REACTIONS (5)
  - Pain in extremity [Unknown]
  - Osteoarthritis [Unknown]
  - Drug ineffective [Recovered/Resolved]
  - Pain [Unknown]
  - Feeling abnormal [Recovered/Resolved]
